FAERS Safety Report 11430996 (Version 1)
Quarter: 2015Q3

REPORT INFORMATION
  Report Type: Spontaneous
  Country: US (occurrence: US)
  Receive Date: 20150828
  Receipt Date: 20150828
  Transmission Date: 20151125
  Serious: Yes (Other)
  Sender: FDA-Public Use
  Company Number: PHEH2014US022406

PATIENT
  Age: 69 Year
  Sex: Female

DRUGS (2)
  1. VIVELLE DOT [Suspect]
     Active Substance: ESTRADIOL
     Dosage: UNK
     Route: 062
  2. VIVELLE DOT [Suspect]
     Active Substance: ESTRADIOL
     Indication: PRODUCT USED FOR UNKNOWN INDICATION
     Dosage: 1 PATCH EVERY OTHER DAY
     Route: 062

REACTIONS (2)
  - Application site rash [Unknown]
  - Myocardial infarction [Unknown]
